FAERS Safety Report 10717201 (Version 2)
Quarter: 2016Q4

REPORT INFORMATION
  Report Type: Spontaneous
  Country: US (occurrence: US)
  Receive Date: 20150116
  Receipt Date: 20161108
  Transmission Date: 20170206
  Serious: Yes (Life-Threatening, Hospitalization, Disabling)
  Sender: FDA-Public Use
  Company Number: US-ENDO PHARMACEUTICALS INC.-HCDA20140166

PATIENT
  Age: 62 Year
  Sex: Male
  Weight: 88.53 kg

DRUGS (8)
  1. HYDROCODONE BITARTRATE / ACETAMINOPHEN 10MG/500MG [Suspect]
     Active Substance: ACETAMINOPHEN\HYDROCODONE BITARTRATE
     Indication: NECK PAIN
     Dosage: 10MG/500MG 4-6 TIMES PER DAY
     Route: 048
     Dates: start: 2006, end: 2012
  2. DURAGESIC [Concomitant]
     Active Substance: FENTANYL
     Indication: NECK PAIN
     Route: 065
     Dates: start: 20091209
  3. LORTAB [Suspect]
     Active Substance: ACETAMINOPHEN\HYDROCODONE BITARTRATE
     Indication: NECK PAIN
     Route: 048
     Dates: start: 20061023
  4. BAYCOL [Concomitant]
     Active Substance: CERIVASTATIN SODIUM
     Indication: PRODUCT USED FOR UNKNOWN INDICATION
     Route: 065
     Dates: start: 2010
  5. HYDROCODONE BITARTRATE / ACETAMINOPHEN 10MG/500MG [Suspect]
     Active Substance: ACETAMINOPHEN\HYDROCODONE BITARTRATE
     Route: 048
     Dates: start: 2006, end: 2012
  6. DURAGESIC [Concomitant]
     Active Substance: FENTANYL
     Route: 065
     Dates: end: 20110902
  7. ROBAXIN [Concomitant]
     Active Substance: METHOCARBAMOL
     Indication: NECK PAIN
     Route: 065
     Dates: start: 20061023
  8. DURAGESIC [Concomitant]
     Active Substance: FENTANYL
     Route: 065
     Dates: start: 20110902

REACTIONS (9)
  - Hepatic encephalopathy [Unknown]
  - Portal hypertension [Unknown]
  - Peritonitis bacterial [Unknown]
  - Hepatic failure [Not Recovered/Not Resolved]
  - Non-alcoholic steatohepatitis [Not Recovered/Not Resolved]
  - Splenomegaly [Unknown]
  - Hepatic cirrhosis [Not Recovered/Not Resolved]
  - Ascites [Unknown]
  - Thrombocytopenia [Unknown]

NARRATIVE: CASE EVENT DATE: 2007
